FAERS Safety Report 8150525-0 (Version None)
Quarter: 2012Q1

REPORT INFORMATION
  Report Type: 
  Country: None (occurrence: None)
  Receive Date: 20120220
  Receipt Date: 20120213
  Transmission Date: 20120608
  Serious: Yes (Other)
  Sender: FDA-Public Use
  Company Number: CA-PFIZER INC-2012023207

PATIENT
  Age: 57 Year
  Sex: Male
  Weight: 41 kg

DRUGS (7)
  1. ASPIRIN [Concomitant]
     Dosage: 81 MG, 1X/DAY
     Dates: start: 20070101
  2. ZOMETA [Concomitant]
     Dosage: 4 MG, CYCLIC (DOSED 3 TIMES IN DEC2011)
     Dates: start: 20111101, end: 20111230
  3. AXITINIB [Suspect]
     Indication: RENAL CELL CARCINOMA
     Dosage: 5 MG, 2X/DAY
     Route: 048
     Dates: start: 20111219, end: 20120127
  4. DENOSUMAB [Concomitant]
     Dosage: 120 MG, SINGLE
     Route: 058
     Dates: start: 20120111, end: 20120111
  5. LIPITOR [Concomitant]
     Dosage: 20 MG, 1X/DAY
     Dates: start: 20070101
  6. NEXIUM [Concomitant]
     Dosage: 40 MG, 1X/DAY
     Dates: start: 20030501
  7. PRILOSEC [Concomitant]
     Dosage: UNK
     Dates: start: 20030501

REACTIONS (1)
  - RENAL FAILURE [None]
